FAERS Safety Report 22619889 (Version 1)
Quarter: 2023Q2

REPORT INFORMATION
  Report Type: Spontaneous
  Country: US (occurrence: US)
  Receive Date: 20230620
  Receipt Date: 20230620
  Transmission Date: 20230722
  Serious: Yes (Other)
  Sender: FDA-Public Use
  Company Number: US-009507513-2306USA006669

PATIENT
  Age: 77 Year
  Sex: Male

DRUGS (1)
  1. KEYTRUDA [Suspect]
     Active Substance: PEMBROLIZUMAB
     Indication: Lung squamous cell carcinoma stage IV
     Dosage: UNK

REACTIONS (5)
  - Ophthalmic herpes simplex [Recovered/Resolved]
  - Varicella keratitis [Recovered/Resolved]
  - Herpes zoster reactivation [Recovered/Resolved]
  - Herpes simplex reactivation [Recovered/Resolved]
  - Immune system disorder [Unknown]
